FAERS Safety Report 5474328-0 (Version None)
Quarter: 2007Q4

REPORT INFORMATION
  Report Type: 
  Country: None (occurrence: None)
  Receive Date: 20071002
  Receipt Date: 20070927
  Transmission Date: 20080405
  Serious: Yes (Death)
  Sender: FDA-Public Use
  Company Number: US-ASTRAZENECA-2007UW20696

PATIENT
  Age: 38 Year
  Sex: Male

DRUGS (9)
  1. SYMBICORT PMDI [Suspect]
     Indication: ASTHMA
     Dosage: 80 / 4.5 UG, 2 INHALATIONS TWICE DAILY
     Route: 055
     Dates: start: 20070731
  2. MORPHINE [Suspect]
  3. ALBUTEROL [Concomitant]
     Indication: ASTHMA
  4. ALBUTEROL [Concomitant]
     Dosage: 2-3 PUFFS EVERY 4-6 HOURS AS NEEDED
     Route: 055
  5. ALLEGRA [Concomitant]
     Indication: HYPERSENSITIVITY
     Dates: start: 20070101
  6. HALDOL [Concomitant]
     Indication: SCHIZOPHRENIA
  7. COGENTIN [Concomitant]
     Indication: SCHIZOPHRENIA
  8. PREVACID [Concomitant]
     Indication: GASTROOESOPHAGEAL REFLUX DISEASE
  9. ADVAIR DISKUS 100/50 [Concomitant]
     Dosage: 250 / 50

REACTIONS (2)
  - CARDIOMYOPATHY [None]
  - DRUG TOXICITY [None]
